FAERS Safety Report 13895569 (Version 2)
Quarter: 2017Q4

REPORT INFORMATION
  Report Type: Spontaneous
  Country: US (occurrence: US)
  Receive Date: 20170823
  Receipt Date: 20171002
  Transmission Date: 20180320
  Serious: Yes (Hospitalization)
  Sender: FDA-Public Use
  Company Number: US-PFIZER INC-2017360931

PATIENT
  Age: 68 Year
  Sex: Female

DRUGS (3)
  1. LIDOCAINE HCL [Suspect]
     Active Substance: LIDOCAINE HYDROCHLORIDE
     Indication: ASPIRATION JOINT
     Dosage: 4 ML, UNK
     Route: 014
     Dates: start: 20170810, end: 20170810
  2. DEPO-MEDROL [Suspect]
     Active Substance: METHYLPREDNISOLONE ACETATE
     Indication: ASPIRATION JOINT
     Dosage: 80 MG, UNK (JOINT INJECTIONS 80MG)
     Route: 014
     Dates: start: 20170810, end: 20170810
  3. BUPIVACAINE HCL [Suspect]
     Active Substance: BUPIVACAINE HYDROCHLORIDE
     Indication: ASPIRATION JOINT
     Dosage: 2 ML, UNK
     Route: 014
     Dates: start: 20170810, end: 20170810

REACTIONS (2)
  - Product use issue [Not Recovered/Not Resolved]
  - Arthritis infective [Not Recovered/Not Resolved]

NARRATIVE: CASE EVENT DATE: 20170810
